FAERS Safety Report 22091304 (Version 3)
Quarter: 2023Q2

REPORT INFORMATION
  Report Type: Spontaneous
  Country: US (occurrence: US)
  Receive Date: 20230314
  Receipt Date: 20230417
  Transmission Date: 20230721
  Serious: Yes (Other)
  Sender: FDA-Public Use
  Company Number: US-AUROBINDO-AUR-APL-2023-011007

PATIENT
  Age: 55 Year
  Sex: Male
  Weight: 85 kg

DRUGS (7)
  1. BIVALIRUDIN [Suspect]
     Active Substance: BIVALIRUDIN
     Indication: Cardiac operation
     Dosage: 32.5 MILLIGRAM(FOLLOWED BY 1.75 MG/KG/HR FOR APPROX.1.5 HOURS)
     Route: 042
     Dates: start: 20230222
  2. HIPREX [Suspect]
     Active Substance: METHENAMINE HIPPURATE
     Indication: Product used for unknown indication
     Dosage: UNK
     Route: 065
  3. ASPIRIN [Concomitant]
     Active Substance: ASPIRIN
     Indication: Product used for unknown indication
     Dosage: UNK
     Route: 065
  4. Clavix [Concomitant]
     Indication: Product used for unknown indication
     Dosage: UNK
     Route: 065
  5. ANGIOMAX [Concomitant]
     Active Substance: BIVALIRUDIN
     Indication: Product used for unknown indication
     Dosage: UNK
     Route: 065
  6. DIATRIZOIC ACID\IODINE\MEGLUMINE [Concomitant]
     Active Substance: DIATRIZOIC ACID\IODINE\MEGLUMINE
     Indication: Product used for unknown indication
     Dosage: UNK
     Route: 065
  7. PLAVIX [Concomitant]
     Active Substance: CLOPIDOGREL BISULFATE
     Indication: Product used for unknown indication
     Dosage: UNK
     Route: 065

REACTIONS (2)
  - Thrombosis [Unknown]
  - Drug ineffective [Unknown]

NARRATIVE: CASE EVENT DATE: 20230222
